APPROVED DRUG PRODUCT: PIMAVANSERIN
Active Ingredient: PIMAVANSERIN TARTRATE
Strength: EQ 34MG BASE
Dosage Form/Route: CAPSULE;ORAL
Application: A214493 | Product #001
Applicant: ZYDUS WORLDWIDE DMCC
Approved: Jan 16, 2024 | RLD: No | RS: No | Type: DISCN